FAERS Safety Report 21279453 (Version 4)
Quarter: 2024Q3

REPORT INFORMATION
  Report Type: Spontaneous
  Country: US (occurrence: US)
  Receive Date: 20220901
  Receipt Date: 20240822
  Transmission Date: 20241016
  Serious: Yes (Hospitalization, Other)
  Sender: RANBAXY
  Company Number: US-SUN PHARMACEUTICAL INDUSTRIES LTD-2022R1-352936

PATIENT
  Age: 20 Year
  Sex: Female

DRUGS (2)
  1. NALTREXONE [Suspect]
     Active Substance: NALTREXONE
     Indication: Substance use disorder
     Route: 065
  2. LITHIUM [Suspect]
     Active Substance: LITHIUM
     Indication: Substance use disorder
     Dosage: UNK
     Route: 065

REACTIONS (3)
  - Eosinophilic pustular folliculitis [Unknown]
  - Pustular psoriasis [Unknown]
  - Toxicity to various agents [Unknown]
